FAERS Safety Report 7281949-1 (Version None)
Quarter: 2011Q1

REPORT INFORMATION
  Report Type: 
  Country: None (occurrence: None)
  Receive Date: 20110208
  Receipt Date: 20101229
  Transmission Date: 20110831
  Serious: Yes (Other)
  Sender: FDA-Public Use
  Company Number: US-BAXTER-2010BH003600

PATIENT
  Age: 54 Year
  Sex: Male
  Weight: 95 kg

DRUGS (44)
  1. HEPARIN SODIUM INJECTION [Suspect]
     Route: 042
     Dates: start: 20080422, end: 20080422
  2. METFORMIN HCL [Concomitant]
     Indication: PRODUCT USED FOR UNKNOWN INDICATION
     Route: 048
  3. DIOVAN [Concomitant]
     Indication: PRODUCT USED FOR UNKNOWN INDICATION
     Route: 048
  4. ASPIRIN [Concomitant]
     Indication: PRODUCT USED FOR UNKNOWN INDICATION
     Route: 048
  5. ANCEF [Concomitant]
     Indication: PRODUCT USED FOR UNKNOWN INDICATION
     Route: 042
  6. HEPARIN SODIUM INJECTION [Suspect]
     Route: 042
     Dates: start: 20080422, end: 20080422
  7. HEPARIN SODIUM INJECTION [Suspect]
     Route: 058
     Dates: start: 20080420, end: 20080421
  8. HEPARIN SODIUM INJECTION [Suspect]
     Route: 058
     Dates: start: 20080420, end: 20080421
  9. DIGOXIN [Concomitant]
     Indication: PRODUCT USED FOR UNKNOWN INDICATION
     Route: 048
  10. DOCUSATE [Concomitant]
     Indication: PRODUCT USED FOR UNKNOWN INDICATION
     Route: 065
  11. IRBESARTAN [Concomitant]
     Indication: PRODUCT USED FOR UNKNOWN INDICATION
     Route: 065
  12. PANTOPRAZOLE [Concomitant]
     Indication: PRODUCT USED FOR UNKNOWN INDICATION
     Route: 065
  13. HEPARIN SODIUM INJECTION [Suspect]
     Route: 058
     Dates: start: 20080420, end: 20080421
  14. HEPARIN SODIUM INJECTION [Suspect]
     Route: 040
     Dates: start: 20080418, end: 20080418
  15. HEPARIN SODIUM INJECTION [Suspect]
     Route: 042
     Dates: start: 20080422, end: 20080422
  16. HEPARIN SODIUM INJECTION [Suspect]
     Route: 042
     Dates: start: 20080423, end: 20080423
  17. GLIPIZIDE [Concomitant]
     Indication: PRODUCT USED FOR UNKNOWN INDICATION
     Route: 048
  18. PAPAVERINE [Concomitant]
     Indication: PRODUCT USED FOR UNKNOWN INDICATION
     Route: 065
  19. HEPARIN SODIUM INJECTION [Suspect]
     Indication: INTRA-AORTIC BALLOON PLACEMENT
     Route: 040
     Dates: start: 20080417, end: 20080417
  20. HEPARIN SODIUM INJECTION [Suspect]
     Route: 042
     Dates: start: 20080422, end: 20080422
  21. HEPARIN SODIUM INJECTION [Suspect]
     Route: 058
     Dates: start: 20080420, end: 20080421
  22. HEPARIN SODIUM 10,000 UNITS IN SODIUM CHLORIDE 0.45% [Suspect]
     Indication: CARDIOVASCULAR EVENT PROPHYLAXIS
     Route: 042
     Dates: start: 20080417, end: 20080419
  23. LISINOPRIL [Concomitant]
     Indication: PRODUCT USED FOR UNKNOWN INDICATION
     Route: 065
  24. HEPARIN SODIUM INJECTION [Suspect]
     Route: 042
     Dates: start: 20080422, end: 20080422
  25. HEPARIN SODIUM INJECTION [Suspect]
     Route: 042
     Dates: start: 20080422, end: 20080422
  26. HEPARIN SODIUM INJECTION [Suspect]
     Route: 042
     Dates: start: 20080423, end: 20080423
  27. HEPARIN SODIUM INJECTION [Suspect]
     Route: 042
     Dates: start: 20080423, end: 20080423
  28. CHLORHEXIDINE GLUCONATE [Concomitant]
     Indication: PRODUCT USED FOR UNKNOWN INDICATION
     Route: 048
  29. HEPARIN SODIUM INJECTION [Suspect]
     Route: 040
     Dates: start: 20080418, end: 20080418
  30. KLOR-CON [Concomitant]
     Indication: PRODUCT USED FOR UNKNOWN INDICATION
     Route: 048
  31. ATORVASTATIN [Concomitant]
     Indication: PRODUCT USED FOR UNKNOWN INDICATION
     Route: 065
  32. MORPHINE [Concomitant]
     Indication: PAIN
     Route: 065
  33. MUPIROCIN [Concomitant]
     Indication: PRODUCT USED FOR UNKNOWN INDICATION
     Route: 061
  34. HEPARIN SODIUM INJECTION [Suspect]
     Route: 040
     Dates: start: 20080418, end: 20080418
  35. HEPARIN SODIUM INJECTION [Suspect]
     Route: 042
     Dates: start: 20080422, end: 20080422
  36. HEPARIN SODIUM INJECTION [Suspect]
     Route: 042
     Dates: start: 20080423, end: 20080423
  37. FUROSEMIDE [Concomitant]
     Indication: PRODUCT USED FOR UNKNOWN INDICATION
     Route: 048
  38. SODIUM CHLORIDE 0.9% IN PLASTIC CONTAINER [Concomitant]
     Indication: PRODUCT USED FOR UNKNOWN INDICATION
     Route: 042
  39. HEPARIN SODIUM INJECTION [Suspect]
     Indication: CARDIOVASCULAR EVENT PROPHYLAXIS
     Route: 040
     Dates: start: 20080417, end: 20080417
  40. HEPARIN SODIUM INJECTION [Suspect]
     Indication: CORONARY ARTERY BYPASS
     Route: 040
     Dates: start: 20080417, end: 20080417
  41. HEPARIN SODIUM INJECTION [Suspect]
     Indication: THROMBOEMBOLECTOMY
     Route: 040
     Dates: start: 20080417, end: 20080417
  42. HEPARIN SODIUM INJECTION [Suspect]
     Route: 040
     Dates: start: 20080418, end: 20080418
  43. HEPARIN SODIUM INJECTION [Suspect]
     Route: 042
     Dates: start: 20080422, end: 20080422
  44. CARVEDILOL [Concomitant]
     Indication: PRODUCT USED FOR UNKNOWN INDICATION
     Route: 065

REACTIONS (12)
  - VOMITING [None]
  - ABDOMINAL PAIN [None]
  - ASTHENIA [None]
  - HEADACHE [None]
  - ARTERIAL THROMBOSIS LIMB [None]
  - PYREXIA [None]
  - CONSTIPATION [None]
  - CHILLS [None]
  - NAUSEA [None]
  - ANAEMIA [None]
  - RENAL FAILURE [None]
  - LEUKOCYTOSIS [None]
